FAERS Safety Report 21271161 (Version 1)
Quarter: 2022Q3

REPORT INFORMATION
  Report Type: Spontaneous
  Country: US (occurrence: US)
  Receive Date: 20220830
  Receipt Date: 20220830
  Transmission Date: 20221026
  Serious: Yes (Other)
  Sender: FDA-Public Use
  Company Number: US-PARI RESPIRATORY EQUIPMENT, INC.-2022PAR00055

PATIENT
  Age: 20 Year
  Sex: Male

DRUGS (2)
  1. KITABIS PAK [Suspect]
     Active Substance: TOBRAMYCIN
     Indication: Cystic fibrosis
     Dosage: 300 MG/5 ML VIA NEBULIZER, 2X/DAY FOR 28 DAYS
     Dates: start: 20220526
  2. MULTIVITAMIN MEN [Concomitant]

REACTIONS (13)
  - Infection [Unknown]
  - Dyspnoea [Unknown]
  - Haemoptysis [Unknown]
  - Respiratory symptom [Unknown]
  - Wheezing [Unknown]
  - Flatulence [Unknown]
  - Abdominal pain upper [Unknown]
  - Product dose omission issue [Unknown]
  - Exercise tolerance decreased [Unknown]
  - Nasal inflammation [Unknown]
  - Nasal congestion [Unknown]
  - Cough [Unknown]
  - Productive cough [Unknown]

NARRATIVE: CASE EVENT DATE: 20220816
